FAERS Safety Report 24446198 (Version 1)
Quarter: 2024Q4

REPORT INFORMATION
  Report Type: Spontaneous
  Country: US (occurrence: None)
  Receive Date: 20241016
  Receipt Date: 20241016
  Transmission Date: 20250115
  Serious: No
  Sender: Public
  Company Number: None

PATIENT
  Sex: Female

DRUGS (2)
  1. RINVOQ [Suspect]
     Active Substance: UPADACITINIB
     Indication: Dermatitis atopic
     Dosage: FREQUENCY : DAILY;?
     Route: 048
     Dates: start: 202309, end: 202409
  2. DUPICENT SYR (2-PK) [Concomitant]

REACTIONS (3)
  - Blood cholesterol increased [None]
  - Thyroid disorder [None]
  - Therapy interrupted [None]
